FAERS Safety Report 9360219 (Version 1)
Quarter: 2013Q2

REPORT INFORMATION
  Report Type: Spontaneous
  Country: US (occurrence: US)
  Receive Date: 20130621
  Receipt Date: 20130621
  Transmission Date: 20140414
  Serious: Yes (Hospitalization)
  Sender: FDA-Public Use
  Company Number: US-ASTRAZENECA-2013SE46735

PATIENT
  Sex: Male

DRUGS (1)
  1. CRESTOR [Suspect]
     Route: 048
     Dates: start: 201212, end: 20130610

REACTIONS (5)
  - Myocardial infarction [Unknown]
  - Blood creatinine abnormal [Unknown]
  - Malaise [Unknown]
  - Fatigue [Unknown]
  - Muscle spasms [Unknown]
